FAERS Safety Report 4643589-X (Version None)
Quarter: 2005Q2

REPORT INFORMATION
  Report Type: 
  Country: None (occurrence: None)
  Receive Date: 20050425
  Receipt Date: 20050310
  Transmission Date: 20051028
  Serious: Yes (Death)
  Sender: FDA-Public Use
  Company Number: DE-BOEHRINGER INGELHEIM PHARMACEUTICALS, INC.-2005-DE-00980DE

PATIENT
  Sex: Male
  Weight: 55 kg

DRUGS (2)
  1. VIRAMUNE [Suspect]
     Indication: HIV INFECTION
     Dates: start: 20041001, end: 20041101
  2. COMBIVIR [Concomitant]
     Indication: HIV INFECTION
     Dates: start: 20041001, end: 20041101

REACTIONS (2)
  - HEPATITIS TOXIC [None]
  - PNEUMONIA [None]
